FAERS Safety Report 8811639 (Version 1)
Quarter: 2012Q4

REPORT INFORMATION
  Report Type: 
  Country: IN (occurrence: IN)
  Receive Date: 20120927
  Receipt Date: 20120927
  Transmission Date: 20130627
  Serious: Yes (Hospitalization, Other)
  Sender: FDA-Public Use
  Company Number: IN-PFIZER INC-2012236225

PATIENT
  Age: 42 Year
  Sex: Male

DRUGS (9)
  1. LIDOCAINE HCL [Suspect]
     Indication: LOCAL ANAESTHESIA
     Dosage: 2%
  2. BUPIVACAINE HYDROCHLORIDE [Suspect]
     Indication: LOCAL ANAESTHESIA
     Dosage: 0.5%
  3. METFORMIN [Concomitant]
     Indication: DIABETES MELLITUS
  4. GLIBENCLAMIDE [Concomitant]
     Indication: DIABETES MELLITUS
  5. PIOGLITAZONE [Concomitant]
     Indication: DIABETES MELLITUS
  6. INDAPAMIDE [Concomitant]
     Indication: HYPERTENSION
  7. TRIAMTERENE [Concomitant]
     Indication: HYPERTENSION
  8. BENZTHIAZIDE [Concomitant]
     Indication: HYPERTENSION
  9. OXYGEN [Concomitant]
     Dosage: 5 L/min

REACTIONS (5)
  - Toxicity to various agents [Recovered/Resolved]
  - Pulmonary oedema [Recovered/Resolved]
  - Cardio-respiratory arrest [Recovered/Resolved]
  - Grand mal convulsion [Recovered/Resolved]
  - Loss of consciousness [Recovered/Resolved]
